FAERS Safety Report 7432082-7 (Version None)
Quarter: 2011Q2

REPORT INFORMATION
  Report Type: 
  Country: None (occurrence: None)
  Receive Date: 20110422
  Receipt Date: 20110407
  Transmission Date: 20111010
  Serious: Yes (Other)
  Sender: FDA-Public Use
  Company Number: US-CELGENEUS-163-21880-11041025

PATIENT
  Age: 71 Year
  Sex: Male
  Weight: 79.45 kg

DRUGS (2)
  1. REVLIMID [Suspect]
     Dosage: 10 MILLIGRAM
     Route: 048
  2. DEXAMETHASONE [Concomitant]
     Route: 065

REACTIONS (2)
  - ADVERSE DRUG REACTION [None]
  - NO THERAPEUTIC RESPONSE [None]
